FAERS Safety Report 6248717-0 (Version None)
Quarter: 2009Q2

REPORT INFORMATION
  Report Type: 
  Country: None (occurrence: None)
  Receive Date: 20090625
  Receipt Date: 20090625
  Transmission Date: 20091009
  Serious: Yes (Hospitalization)
  Sender: FDA-Public Use
  Company Number: None

PATIENT
  Age: 66 Year
  Sex: Male
  Weight: 83.9 kg

DRUGS (1)
  1. FUROSEMIDE [Suspect]
     Indication: FLUID IMBALANCE
     Dosage: 20 MG EVERY DAY PO
     Route: 048
     Dates: start: 20090413, end: 20090623

REACTIONS (2)
  - HYPONATRAEMIA [None]
  - SYNCOPE [None]
